FAERS Safety Report 14702019 (Version 2)
Quarter: 2018Q3

REPORT INFORMATION
  Report Type: Report from Study
  Country: CN (occurrence: CN)
  Receive Date: 20180331
  Receipt Date: 20180809
  Transmission Date: 20181010
  Serious: Yes (Other)
  Sender: FDA-Public Use
  Company Number: CN-ROCHE-2094412

PATIENT
  Sex: Female
  Weight: 57 kg

DRUGS (1)
  1. AVASTIN [Suspect]
     Active Substance: BEVACIZUMAB
     Indication: COLORECTAL CANCER
     Route: 041
     Dates: start: 20170728

REACTIONS (5)
  - Liver injury [Unknown]
  - Hepatic function abnormal [Unknown]
  - Blood test abnormal [Unknown]
  - Blood bilirubin increased [Unknown]
  - Liver function test increased [Unknown]
